FAERS Safety Report 7705746-5 (Version None)
Quarter: 2011Q3

REPORT INFORMATION
  Report Type: 
  Country: None (occurrence: None)
  Receive Date: 20110824
  Receipt Date: 20110812
  Transmission Date: 20111222
  Serious: Yes (Hospitalization)
  Sender: FDA-Public Use
  Company Number: CA-SANOFI-AVENTIS-2011SA044377

PATIENT
  Age: 68 Year
  Sex: Male
  Weight: 84 kg

DRUGS (9)
  1. FINASTERIDE [Concomitant]
     Route: 065
  2. METOPROLOL [Concomitant]
  3. ASPIRIN [Concomitant]
     Route: 065
  4. HYDROCHLOROTHIAZIDE [Concomitant]
     Route: 065
  5. DRONEDARONE HCL [Suspect]
     Indication: ATRIAL FIBRILLATION
     Route: 048
     Dates: start: 20110518
  6. AMLODIPINE [Concomitant]
     Route: 065
  7. WARFARIN SODIUM [Concomitant]
     Dosage: 34 MG WEEKLY
  8. PERINDOPRIL [Concomitant]
     Route: 048
  9. DABIGATRAN [Concomitant]
     Route: 065
     Dates: start: 20110521

REACTIONS (2)
  - VENTRICULAR TACHYCARDIA [None]
  - SYNCOPE [None]
